FAERS Safety Report 5277545-8 (Version None)
Quarter: 2007Q1

REPORT INFORMATION
  Report Type: 
  Country: None (occurrence: None)
  Receive Date: 20061214
  Receipt Date: 20060227
  Transmission Date: 20070707
  Serious: Yes (Hospitalization)
  Sender: FDA-Public Use
  Company Number: 06P-163-0326181-00

PATIENT
  Age: 50 Year
  Sex: Female
  Weight: 105 kg

DRUGS (4)
  1. TARKA [Suspect]
     Indication: HYPERTENSION
     Dosage: 2 IN 1 D
     Dates: start: 20040101, end: 20060224
  2. AMLODIPINE BESYLATE [Concomitant]
  3. FUROSEMIDE [Concomitant]
  4. HYDROCHLOROTHIAZIDE [Concomitant]

REACTIONS (2)
  - ANGIOEDEMA [None]
  - PRURITUS [None]
